FAERS Safety Report 9233878 (Version 2)
Quarter: 2013Q2

REPORT INFORMATION
  Report Type: Spontaneous
  Country: VE (occurrence: VE)
  Receive Date: 20130416
  Receipt Date: 20130513
  Transmission Date: 20140414
  Serious: Yes (Other)
  Sender: FDA-Public Use
  Company Number: VE-PFIZER INC-2013117122

PATIENT
  Age: 70 Year
  Sex: Female

DRUGS (2)
  1. CADUET [Suspect]
     Indication: NERVOUSNESS
     Dosage: 5 MG/ 20 MG ONCE A DAY
     Route: 048
     Dates: start: 201303, end: 201304
  2. COAPROVEL [Concomitant]
     Indication: HYPERTENSION
     Dosage: 25MG/ 300MG, 1X/DAY
     Route: 048
     Dates: start: 2010

REACTIONS (2)
  - Carpal tunnel syndrome [Recovered/Resolved]
  - Off label use [Recovered/Resolved]
